FAERS Safety Report 8004057-0 (Version None)
Quarter: 2011Q4

REPORT INFORMATION
  Report Type: 
  Country: None (occurrence: None)
  Receive Date: 20111222
  Receipt Date: 20111216
  Transmission Date: 20120403
  Serious: Yes (Hospitalization)
  Sender: FDA-Public Use
  Company Number: TR-GILEAD-2011-0048264

PATIENT
  Age: 14 Year
  Sex: Female

DRUGS (1)
  1. VIREAD [Suspect]
     Indication: INTENTIONAL OVERDOSE

REACTIONS (2)
  - INTENTIONAL OVERDOSE [None]
  - SUICIDE ATTEMPT [None]
